FAERS Safety Report 18955638 (Version 1)
Quarter: 2021Q1

REPORT INFORMATION
  Report Type: Spontaneous
  Country: CN (occurrence: CN)
  Receive Date: 20210301
  Receipt Date: 20210301
  Transmission Date: 20210420
  Serious: Yes (Other)
  Sender: FDA-Public Use
  Company Number: CN-PFIZER INC-2021194722

PATIENT
  Age: 59 Year
  Sex: Female
  Weight: 59 kg

DRUGS (7)
  1. BUTYLPHTHALIDE AND SODIUM CHLORIDE [Suspect]
     Active Substance: BUTYLPHTHALIDE
     Indication: CEREBRAL INFARCTION
     Dosage: 25 MG, EVERY 12 HOURS
     Route: 041
     Dates: start: 20210114, end: 20210125
  2. ATORVASTATIN CALCIUM. [Suspect]
     Active Substance: ATORVASTATIN CALCIUM
     Indication: CEREBRAL INFARCTION
     Dosage: 40 MG, 1X/DAY
     Route: 048
     Dates: start: 20210114, end: 20210125
  3. PLAVIX [Suspect]
     Active Substance: CLOPIDOGREL BISULFATE
     Indication: CEREBRAL INFARCTION
     Dosage: 75.000 MG, 1X/DAY
     Route: 048
     Dates: start: 20210114, end: 20210125
  4. PENTOXIFYLLINE. [Concomitant]
     Active Substance: PENTOXIFYLLINE
     Indication: CEREBRAL INFARCTION
     Dosage: 0.200 G, 1X/DAY
     Route: 041
     Dates: start: 20210115, end: 20210123
  5. SODIUM CHLORIDE. [Concomitant]
     Active Substance: SODIUM CHLORIDE
     Indication: CEREBRAL INFARCTION
     Dosage: 250.000 ML, 1X/DAY
     Route: 041
     Dates: start: 20210115, end: 20210123
  6. PIRACETAM AND SODIUM CHLORIDE [Suspect]
     Active Substance: PIRACETAM
     Indication: CEREBRAL INFARCTION
     Dosage: 20.000 G, 1X/DAY
     Route: 041
     Dates: start: 20210114, end: 20210125
  7. BAYASPIRIN [Suspect]
     Active Substance: ASPIRIN
     Indication: CEREBRAL INFARCTION
     Dosage: 0.100 G, 1X/DAY
     Route: 048
     Dates: start: 20210114, end: 20210125

REACTIONS (1)
  - Dermatitis exfoliative [Recovering/Resolving]

NARRATIVE: CASE EVENT DATE: 20210125
